FAERS Safety Report 17586719 (Version 1)
Quarter: 2020Q1

REPORT INFORMATION
  Report Type: Spontaneous
  Country: DE (occurrence: DE)
  Receive Date: 20200326
  Receipt Date: 20200326
  Transmission Date: 20200409
  Serious: Yes (Other)
  Sender: FDA-Public Use
  Company Number: DE-PFIZER INC-2020125794

PATIENT
  Age: 44 Year
  Sex: Male
  Weight: 86 kg

DRUGS (8)
  1. CANNABIDIOL [Concomitant]
     Active Substance: CANNABIDIOL
     Indication: FEELING OF RELAXATION
     Dosage: 50 MG, 1X/DAY
     Dates: start: 201912
  2. CIPROFLOXACIN. [Suspect]
     Active Substance: CIPROFLOXACIN
     Indication: URINARY TRACT INFECTION
  3. VALIUM [Concomitant]
     Active Substance: DIAZEPAM
     Indication: RESTLESSNESS
     Dosage: 5 MG, 2-3 X PER MONTH IN THE EVENT OF SEVERE RESTLESSNESS
  4. CANNABIDIOL [Concomitant]
     Active Substance: CANNABIDIOL
     Indication: PAIN
  5. AZITHROMYCIN ANHYDROUS. [Suspect]
     Active Substance: AZITHROMYCIN ANHYDROUS
     Indication: GONOCOCCAL INFECTION
     Dosage: 1.5 G, 1X/DAY
     Route: 048
     Dates: start: 20191029
  6. CEFTRIAXON [Suspect]
     Active Substance: CEFTRIAXONE
     Indication: GONOCOCCAL INFECTION
     Dosage: 2 G, 1X/DAY
     Route: 030
     Dates: start: 20191029
  7. LAIF 900 [Concomitant]
     Dosage: UNK
  8. CIPROFLOXACIN. [Suspect]
     Active Substance: CIPROFLOXACIN
     Indication: GONOCOCCAL INFECTION
     Dosage: 1000 MG, 1X/DAY (OVER 5 DAYS)
     Route: 048
     Dates: start: 20191024, end: 20191027

REACTIONS (17)
  - Loss of personal independence in daily activities [Recovered/Resolved]
  - Alcohol intolerance [Recovered/Resolved]
  - Restlessness [Recovered/Resolved]
  - Muscle twitching [Recovered/Resolved]
  - Social avoidant behaviour [Recovered/Resolved]
  - Limb discomfort [Recovered/Resolved]
  - Hyperacusis [Recovered/Resolved]
  - Gait disturbance [Recovered/Resolved]
  - Fatigue [Recovered/Resolved]
  - Agitation [Recovered/Resolved]
  - Condition aggravated [Recovered/Resolved]
  - Myalgia [Recovered/Resolved]
  - Neuropathy peripheral [Recovered/Resolved]
  - Sleep disorder [Recovered/Resolved]
  - Neuralgia [Recovered/Resolved]
  - Muscular weakness [Recovered/Resolved]
  - Anxiety [Recovered/Resolved]

NARRATIVE: CASE EVENT DATE: 20191112
